FAERS Safety Report 17359183 (Version 3)
Quarter: 2020Q1

REPORT INFORMATION
  Report Type: Spontaneous
  Country: TR (occurrence: TR)
  Receive Date: 20200203
  Receipt Date: 20200212
  Transmission Date: 20200409
  Serious: Yes (Death, Life-Threatening, Hospitalization, Other)
  Sender: FDA-Public Use
  Company Number: TR-ACCORD-171079

PATIENT
  Age: 72 Year
  Sex: Male

DRUGS (1)
  1. METHOTREXATE. [Suspect]
     Active Substance: METHOTREXATE
     Indication: PAIN
     Dosage: (PATIENT HAD BEEN TAKING THE MEDICATION INTERMITTENTLY )
     Route: 030

REACTIONS (16)
  - Sepsis [Fatal]
  - Accidental overdose [Fatal]
  - Wrong product administered [Unknown]
  - Infection [Fatal]
  - Dysphagia [Unknown]
  - Toxicity to various agents [Fatal]
  - Candida infection [Unknown]
  - Mucosal inflammation [Unknown]
  - Rash maculo-papular [Unknown]
  - Acinetobacter infection [Unknown]
  - Dehydration [Unknown]
  - Disseminated intravascular coagulation [Fatal]
  - Faeces discoloured [Unknown]
  - Renal failure [Unknown]
  - Incorrect dose administered [Unknown]
  - Neutropenic colitis [Fatal]
